FAERS Safety Report 19881511 (Version 10)
Quarter: 2022Q4

REPORT INFORMATION
  Report Type: Report from Study
  Country: US (occurrence: US)
  Receive Date: 20210925
  Receipt Date: 20221226
  Transmission Date: 20230113
  Serious: Yes (Other)
  Sender: FDA-Public Use
  Company Number: US-TAKEDA-US202015566

PATIENT
  Age: 71 Year
  Sex: Female

DRUGS (5)
  1. HUMAN IMMUNOGLOBULIN G [Suspect]
     Active Substance: HUMAN IMMUNOGLOBULIN G
     Indication: Primary immunodeficiency syndrome
     Dosage: UNK
     Route: 065
  2. HUMAN IMMUNOGLOBULIN G [Suspect]
     Active Substance: HUMAN IMMUNOGLOBULIN G
     Indication: Immunodeficiency common variable
  3. COVID-19 VACCINE NOS [Suspect]
     Active Substance: COVID-19 VACCINE NOS
     Indication: COVID-19 immunisation
     Route: 065
  4. SINGULAIR [Concomitant]
     Active Substance: MONTELUKAST SODIUM
     Dosage: UNK UNK, QD
     Route: 065
  5. CELEBREX [Concomitant]
     Active Substance: CELECOXIB
     Indication: Inflammation
     Route: 065

REACTIONS (20)
  - Hyperthyroidism [Unknown]
  - Interstitial lung disease [Unknown]
  - Illness [Unknown]
  - Weight fluctuation [Unknown]
  - Irritable bowel syndrome [Unknown]
  - Road traffic accident [Unknown]
  - Fibromyalgia [Unknown]
  - Blood immunoglobulin A decreased [Unknown]
  - Osteoarthritis [Unknown]
  - Sinus disorder [Unknown]
  - General physical health deterioration [Unknown]
  - Osteoporosis [Unknown]
  - Blood pressure abnormal [Unknown]
  - Neck pain [Recovered/Resolved]
  - Influenza [Unknown]
  - Injection site reaction [Recovered/Resolved]
  - Injection site pain [Recovered/Resolved]
  - Product storage error [Unknown]
  - Product packaging issue [Unknown]
  - Needle issue [Unknown]

NARRATIVE: CASE EVENT DATE: 20200501
